FAERS Safety Report 4820544-8 (Version None)
Quarter: 2005Q4

REPORT INFORMATION
  Report Type: 
  Country: None (occurrence: None)
  Receive Date: 20051014
  Receipt Date: 20050907
  Transmission Date: 20060501
  Serious: No
  Sender: FDA-Public Use
  Company Number: 2005SP002683

PATIENT
  Age: 65 Year
  Sex: Female

DRUGS (7)
  1. LUNESTA [Suspect]
     Dosage: SEE IMAGE
     Route: 048
     Dates: start: 20050901, end: 20050901
  2. LUNESTA [Suspect]
     Dosage: SEE IMAGE
     Route: 048
     Dates: start: 20050901
  3. CALCIUM GLUCONATE [Concomitant]
  4. IBUPROFEN [Concomitant]
  5. ASCORBIC ACID [Concomitant]
  6. MAGNESIUM [Concomitant]
  7. VITAMIN CAP [Concomitant]

REACTIONS (1)
  - INITIAL INSOMNIA [None]
